FAERS Safety Report 7224451-5 (Version None)
Quarter: 2011Q1

REPORT INFORMATION
  Report Type: 
  Country: None (occurrence: None)
  Receive Date: 20110113
  Receipt Date: 20110104
  Transmission Date: 20110831
  Serious: Yes (Other)
  Sender: FDA-Public Use
  Company Number: FR-JNJFOC-20110101488

PATIENT
  Sex: Male
  Weight: 18 kg

DRUGS (1)
  1. TOPIRAMATE [Suspect]
     Indication: DRUG EXPOSURE DURING PREGNANCY
     Route: 064

REACTIONS (4)
  - BRONCHITIS [None]
  - ABNORMAL BEHAVIOUR [None]
  - INGUINAL HERNIA [None]
  - LEARNING DISORDER [None]
